FAERS Safety Report 7618253-5 (Version None)
Quarter: 2011Q3

REPORT INFORMATION
  Report Type: 
  Country: None (occurrence: None)
  Receive Date: 20110718
  Receipt Date: 20110710
  Transmission Date: 20111222
  Serious: Yes (Other)
  Sender: FDA-Public Use
  Company Number: EG-GLAXOSMITHKLINE-B0732570A

PATIENT
  Age: 30 Year
  Sex: Female
  Weight: 80 kg

DRUGS (3)
  1. IBUPROFEN [Concomitant]
  2. ZINACEF [Suspect]
     Indication: UPPER RESPIRATORY TRACT INFECTION
     Dosage: 500MG TWICE PER DAY
     Route: 065
     Dates: start: 20110630, end: 20110704
  3. ACETAMINOPHEN [Concomitant]

REACTIONS (4)
  - CHROMATURIA [None]
  - JAUNDICE CHOLESTATIC [None]
  - PRURITUS [None]
  - HEPATIC ENZYME INCREASED [None]
